FAERS Safety Report 7753908-3 (Version None)
Quarter: 2011Q3

REPORT INFORMATION
  Report Type: 
  Country: None (occurrence: None)
  Receive Date: 20110915
  Receipt Date: 20110913
  Transmission Date: 20111222
  Serious: Yes (Life-Threatening, Hospitalization, Other)
  Sender: FDA-Public Use
  Company Number: JP-B.I. PHARMACEUTICALS,INC./RIDGEFIELD-2011-BP-20687NB

PATIENT
  Sex: Female

DRUGS (6)
  1. NORVASC [Concomitant]
     Indication: HYPERTENSION
     Dosage: 5 MG
     Route: 048
  2. OPALMON [Suspect]
     Dosage: 10 MCG
     Route: 048
     Dates: start: 20090323, end: 20110818
  3. METHYLCOBAL [Concomitant]
     Dosage: 1000 MCG
     Route: 065
  4. PRADAXA [Suspect]
     Indication: ATRIAL FIBRILLATION
     Dosage: 110 MG
     Route: 048
     Dates: end: 20110818
  5. MUCOSTA [Concomitant]
     Dosage: 200 MG
     Route: 065
  6. CANDESARTAN CILEXETIL [Concomitant]
     Indication: HYPERTENSION
     Dosage: 8 MG
     Route: 048

REACTIONS (3)
  - RECTAL ULCER HAEMORRHAGE [None]
  - ANAEMIA [None]
  - SKIN ULCER [None]
